FAERS Safety Report 5759551-X (Version None)
Quarter: 2008Q2

REPORT INFORMATION
  Report Type: 
  Country: None (occurrence: None)
  Receive Date: 20080604
  Receipt Date: 20080604
  Transmission Date: 20081010
  Serious: No
  Sender: FDA-Public Use
  Company Number: None

PATIENT
  Age: 41 Year
  Sex: Female
  Weight: 141.0687 kg

DRUGS (2)
  1. LISINOPRIL [Suspect]
     Dosage: 20 MG ONCE DAILY ORAL IN THE LAST 1-2 WKS
     Route: 048
  2. HYZAAR [Suspect]
     Dosage: 50/25 MG ONCE DAILY ORAL  FEW MTHS AGO
     Route: 048

REACTIONS (1)
  - HEADACHE [None]
